FAERS Safety Report 8717765 (Version 2)
Quarter: 2012Q4

REPORT INFORMATION
  Report Type: 
  Country: US (occurrence: US)
  Receive Date: 20120810
  Receipt Date: 20120907
  Transmission Date: 20130627
  Serious: Yes (Congenital Anomaly)
  Sender: FDA-Public Use
  Company Number: US-VIIV HEALTHCARE LIMITED-A0988838B

PATIENT

DRUGS (3)
  1. COMBIVIR [Suspect]
     Indication: ANTIRETROVIRAL THERAPY
     Dosage: 2TAB per day
     Route: 064
     Dates: start: 20051207
  2. KALETRA [Suspect]
     Indication: ANTIRETROVIRAL THERAPY
     Dosage: 4TAB per day
     Route: 064
     Dates: start: 20100609
  3. PRENATAL VITAMIN [Concomitant]
     Route: 064

REACTIONS (5)
  - Meningomyelocele [Unknown]
  - Talipes [Unknown]
  - Ultrasound scan abnormal [Unknown]
  - Foetal exposure during pregnancy [Unknown]
  - Abortion induced [None]
